FAERS Safety Report 6328849-9 (Version None)
Quarter: 2009Q3

REPORT INFORMATION
  Report Type: 
  Country: None (occurrence: None)
  Receive Date: 20090825
  Receipt Date: 20090825
  Transmission Date: 20100115
  Serious: Yes (Other)
  Sender: FDA-Public Use
  Company Number: None

PATIENT
  Age: 61 Year
  Sex: Female

DRUGS (1)
  1. THYROID TAB [Suspect]
     Indication: HYPOTHYROIDISM
     Dosage: 120 MG 1/DAY PO
     Route: 048
     Dates: start: 20090627, end: 20090821

REACTIONS (5)
  - ALOPECIA [None]
  - BLOOD PRESSURE FLUCTUATION [None]
  - MENTAL IMPAIRMENT [None]
  - PALPITATIONS [None]
  - PRODUCT FORMULATION ISSUE [None]
